FAERS Safety Report 20171669 (Version 3)
Quarter: 2022Q1

REPORT INFORMATION
  Report Type: Spontaneous
  Country: US (occurrence: US)
  Receive Date: 20211210
  Receipt Date: 20220208
  Transmission Date: 20220423
  Serious: Yes (Other)
  Sender: FDA-Public Use
  Company Number: US-ALLERGAN-2140871US

PATIENT
  Sex: Female

DRUGS (1)
  1. LATISSE [Suspect]
     Active Substance: BIMATOPROST
     Indication: Growth of eyelashes
     Dosage: UNK
     Dates: start: 2021

REACTIONS (5)
  - Cataract [Recovered/Resolved]
  - Visual impairment [Recovered/Resolved]
  - Madarosis [Recovered/Resolved]
  - Vision blurred [Recovered/Resolved]
  - Trichorrhexis [Recovered/Resolved]

NARRATIVE: CASE EVENT DATE: 20211129
